FAERS Safety Report 24195492 (Version 2)
Quarter: 2024Q3

REPORT INFORMATION
  Report Type: Spontaneous
  Country: US (occurrence: US)
  Receive Date: 20240809
  Receipt Date: 20240902
  Transmission Date: 20241016
  Serious: Yes (Hospitalization, Other)
  Sender: BAXTER
  Company Number: US-BAXTER-2024BAX022544

PATIENT
  Age: 60 Year
  Sex: Male
  Weight: 95.5 kg

DRUGS (15)
  1. CYCLOPHOSPHAMIDE [Suspect]
     Active Substance: CYCLOPHOSPHAMIDE
     Indication: Diffuse large B-cell lymphoma
     Dosage: UNK, Q3W, AS A PART OF R-CHOP REGIMEN, DOSAGE FORM: INFUSION
     Route: 042
     Dates: start: 20230207, end: 20230402
  2. CYCLOPHOSPHAMIDE [Suspect]
     Active Substance: CYCLOPHOSPHAMIDE
     Dosage: UNK, AS A PART OF R-CHOP REGIMEN, LAST DOSE PRIOR TO THE ONSET OF THE EVENT
     Route: 042
     Dates: start: 20230321
  3. CYCLOPHOSPHAMIDE [Suspect]
     Active Substance: CYCLOPHOSPHAMIDE
     Dosage: UNK, Q3W, AS A PART OF R-CHOP REGIMEN, DOSAGE FORM: INFUSION
     Route: 042
     Dates: start: 20230418
  4. DOXORUBICIN [Suspect]
     Active Substance: DOXORUBICIN
     Indication: Diffuse large B-cell lymphoma
     Dosage: UNK,Q3W, AS A PART OF R-CHOP REGIMEN
     Route: 042
     Dates: start: 20230207, end: 20230402
  5. DOXORUBICIN [Suspect]
     Active Substance: DOXORUBICIN
     Dosage: UNK, Q3WAS A PART OF R-CHOP REGIMEN
     Route: 042
     Dates: start: 20230418
  6. DOXORUBICIN [Suspect]
     Active Substance: DOXORUBICIN
     Dosage: UNK, AS A PART OF R-CHOP REGIMEN, LAST DOSE PRIOR TO THE ONSET OF THE EVENT
     Route: 042
     Dates: start: 20230321
  7. RITUXIMAB [Suspect]
     Active Substance: RITUXIMAB
     Indication: Diffuse large B-cell lymphoma
     Dosage: UNK, Q3W, AS A PART OF R-CHOP REGIMEN
     Route: 042
     Dates: start: 20230207, end: 20230402
  8. RITUXIMAB [Suspect]
     Active Substance: RITUXIMAB
     Dosage: UNK, Q3W, AS A PART OF R-CHOP REGIMEN
     Route: 042
     Dates: start: 20230418
  9. RITUXIMAB [Suspect]
     Active Substance: RITUXIMAB
     Dosage: UNK, AS A PART OF R-CHOP REGIMEN, LAST DOSE PRIOR TO THE ONSET OF THE EVENT
     Route: 042
     Dates: start: 20230321
  10. VINCRISTINE [Suspect]
     Active Substance: VINCRISTINE
     Indication: Diffuse large B-cell lymphoma
     Dosage: UNK, Q3W, AS A PART OF R-CHOP REGIMEN
     Route: 042
     Dates: start: 20230207, end: 20230402
  11. VINCRISTINE [Suspect]
     Active Substance: VINCRISTINE
     Dosage: UNK, Q3W, AS A PART OF R-CHOP REGIMEN
     Route: 042
     Dates: start: 20230418
  12. VINCRISTINE [Suspect]
     Active Substance: VINCRISTINE
     Dosage: UNK, AS A PART OF R-CHOP REGIMEN, LAST DOSE PRIOR TO THE ONSET OF THE EVENT
     Route: 042
     Dates: start: 20230321
  13. PREDNISOLONE [Suspect]
     Active Substance: PREDNISOLONE
     Indication: Diffuse large B-cell lymphoma
     Dosage: UNK, MILLIGRAM/SQ. METER, Q3W, AS A PART OF R-CHOP REGIMEN
     Route: 042
     Dates: start: 20230207, end: 20230402
  14. PREDNISOLONE [Suspect]
     Active Substance: PREDNISOLONE
     Dosage: UNK, Q3W, MILLIGRAM/SQ. METER, AS A PART OF R-CHOP REGIMEN
     Route: 042
     Dates: start: 20230418
  15. PREDNISOLONE [Suspect]
     Active Substance: PREDNISOLONE
     Dosage: UNK, AS A PART OF R-CHOP REGIMEN, LAST DOSE PRIOR TO THE ONSET OF THE EVENT
     Route: 042
     Dates: start: 20230321

REACTIONS (2)
  - Neutropenia [Recovered/Resolved]
  - Pyrexia [Not Recovered/Not Resolved]

NARRATIVE: CASE EVENT DATE: 20230402
